FAERS Safety Report 19924003 (Version 3)
Quarter: 2022Q1

REPORT INFORMATION
  Report Type: Report from Study
  Country: US (occurrence: US)
  Receive Date: 20211006
  Receipt Date: 20220125
  Transmission Date: 20220423
  Serious: Yes (Other)
  Sender: FDA-Public Use
  Company Number: US-BIOVITRUM-2020US4292

PATIENT
  Age: 60 Year
  Sex: Female

DRUGS (1)
  1. KINERET [Suspect]
     Active Substance: ANAKINRA
     Indication: Still^s disease
     Route: 058
     Dates: start: 20190420

REACTIONS (25)
  - Mental impairment [Unknown]
  - Still^s disease [Unknown]
  - Condition aggravated [Unknown]
  - Hypoacusis [Unknown]
  - Vaccination complication [Unknown]
  - Uterine leiomyoma [Unknown]
  - Inner ear inflammation [Recovering/Resolving]
  - Pyrexia [Unknown]
  - Weight decreased [Unknown]
  - Night sweats [Unknown]
  - Fatigue [Not Recovered/Not Resolved]
  - Asthenia [Not Recovered/Not Resolved]
  - Balance disorder [Unknown]
  - Blood test abnormal [Unknown]
  - Emotional disorder [Unknown]
  - Inflammatory marker increased [Unknown]
  - Osteoporosis [Unknown]
  - Depression [Unknown]
  - Sinusitis [Unknown]
  - Daydreaming [Unknown]
  - Illness [Unknown]
  - Anxiety [Unknown]
  - Syringe issue [Unknown]
  - Product storage error [Unknown]
  - Off label use [Unknown]

NARRATIVE: CASE EVENT DATE: 20190420
